FAERS Safety Report 10273272 (Version 3)
Quarter: 2014Q3

REPORT INFORMATION
  Report Type: Spontaneous
  Country: CA (occurrence: CA)
  Receive Date: 20140702
  Receipt Date: 20140908
  Transmission Date: 20150326
  Serious: Yes (Hospitalization)
  Sender: FDA-Public Use
  Company Number: CHPA2014CA008914

PATIENT
  Age: 67 Year
  Sex: Male

DRUGS (2)
  1. HABITROL [Suspect]
     Active Substance: NICOTINE
     Dosage: 1 DF, QD
     Route: 062
  2. HABITROL [Suspect]
     Active Substance: NICOTINE
     Dosage: 1 TO 2 PATCHES A DAY
     Route: 062
     Dates: start: 201406, end: 20140629

REACTIONS (2)
  - Myocardial infarction [Recovered/Resolved]
  - Inappropriate schedule of drug administration [Unknown]
